FAERS Safety Report 15976779 (Version 1)
Quarter: 2019Q1

REPORT INFORMATION
  Report Type: Report from Study
  Country: CA (occurrence: CA)
  Receive Date: 20190218
  Receipt Date: 20190218
  Transmission Date: 20190418
  Serious: Yes (Other)
  Sender: FDA-Public Use
  Company Number: CA-JNJFOC-20190134855

PATIENT
  Age: 17 Year
  Sex: Female
  Weight: 48.4 kg

DRUGS (1)
  1. STELARA [Suspect]
     Active Substance: USTEKINUMAB
     Indication: PSORIASIS
     Route: 058
     Dates: start: 20181009

REACTIONS (1)
  - Peritonsillar abscess [Unknown]

NARRATIVE: CASE EVENT DATE: 201901
